FAERS Safety Report 23682442 (Version 3)
Quarter: 2025Q1

REPORT INFORMATION
  Report Type: Spontaneous
  Country: JP (occurrence: JP)
  Receive Date: 20240328
  Receipt Date: 20250224
  Transmission Date: 20250409
  Serious: Yes (Hospitalization, Other)
  Sender: EISAI
  Company Number: JP-Eisai-202315495_LEN-EC_P_1

PATIENT
  Sex: Female

DRUGS (2)
  1. LENVATINIB [Suspect]
     Active Substance: LENVATINIB
     Indication: Endometrial cancer recurrent
     Route: 048
     Dates: start: 20231204, end: 20240520
  2. KEYTRUDA [Suspect]
     Active Substance: PEMBROLIZUMAB
     Indication: Endometrial cancer recurrent
     Dates: start: 20231204, end: 20240520

REACTIONS (9)
  - Immune-mediated pancreatitis [Recovering/Resolving]
  - Immune-mediated lung disease [Recovering/Resolving]
  - Pyrexia [Recovered/Resolved]
  - Nephrotic syndrome [Recovering/Resolving]
  - Diarrhoea [Recovered/Resolved]
  - Pancreatic enzymes increased [Recovered/Resolved]
  - Enterocolitis [Recovering/Resolving]
  - Immune-mediated enterocolitis [Recovered/Resolved]
  - Colitis [Recovered/Resolved]

NARRATIVE: CASE EVENT DATE: 20240101
